FAERS Safety Report 5310637-3 (Version None)
Quarter: 2007Q1

REPORT INFORMATION
  Report Type: 
  Country: None (occurrence: None)
  Receive Date: 20070201
  Receipt Date: 20061023
  Transmission Date: 20070707
  Serious: No
  Sender: FDA-Public Use
  Company Number: 258318

PATIENT
  Age: 54 Year
  Sex: Female
  Weight: 85.7 kg

DRUGS (4)
  1. LEVEMIR [Suspect]
     Indication: INSULIN-REQUIRING TYPE II DIABETES MELLITUS
     Dosage: 10 IU, QD, SUBCUTANEOUS
     Route: 058
     Dates: start: 20061019
  2. GLUCOPHAGE /00082701/(METFORMIN) [Concomitant]
  3. GLYBURIDE [Concomitant]
  4. COZAAR [Concomitant]

REACTIONS (3)
  - HEADACHE [None]
  - NAUSEA [None]
  - RESTLESSNESS [None]
